FAERS Safety Report 14759188 (Version 3)
Quarter: 2018Q4

REPORT INFORMATION
  Report Type: Spontaneous
  Country: GB (occurrence: ZM)
  Receive Date: 20180413
  Receipt Date: 20181002
  Transmission Date: 20190204
  Serious: Yes (Death, Other)
  Sender: FDA-Public Use
  Company Number: GB-PFIZER INC-2018147708

PATIENT
  Sex: Female

DRUGS (1)
  1. ZITHROMAX [Suspect]
     Active Substance: AZITHROMYCIN DIHYDRATE
     Indication: PROPHYLAXIS
     Dosage: UNK

REACTIONS (2)
  - Death [Fatal]
  - Product administration error [Fatal]

NARRATIVE: CASE EVENT DATE: 2015
